FAERS Safety Report 7452590-2 (Version None)
Quarter: 2011Q2

REPORT INFORMATION
  Report Type: 
  Country: None (occurrence: None)
  Receive Date: 20110502
  Receipt Date: 20100920
  Transmission Date: 20111010
  Serious: No
  Sender: FDA-Public Use
  Company Number: US-ASTRAZENECA-2010SE44174

PATIENT
  Age: 86 Year
  Sex: Male
  Weight: 68 kg

DRUGS (3)
  1. NEXIUM [Suspect]
     Indication: DYSPEPSIA
     Route: 048
     Dates: start: 20100901
  2. OMEPRAZOLE [Suspect]
     Route: 048
  3. SIMVASTATIN [Concomitant]
     Indication: HYPERCHOLESTEROLAEMIA

REACTIONS (2)
  - DYSPEPSIA [None]
  - DRUG INEFFECTIVE [None]
